FAERS Safety Report 8305989-6 (Version None)
Quarter: 2012Q2

REPORT INFORMATION
  Report Type: 
  Country: None (occurrence: None)
  Receive Date: 20120423
  Receipt Date: 20120413
  Transmission Date: 20120825
  Serious: Yes (Hospitalization)
  Sender: FDA-Public Use
  Company Number: JP-VERTEX PHARMACEUTICALS INC.-AE-2012-005504

PATIENT
  Age: 61 Year
  Sex: Male

DRUGS (19)
  1. NERISONA [Concomitant]
     Route: 051
  2. LOCHOLEST [Concomitant]
     Route: 048
  3. LOCOID [Concomitant]
     Route: 061
  4. CANDESARTAN CILEXETIL AND HYDROCHLOROTHIAZIDE [Concomitant]
     Route: 048
  5. RINDERON A [Concomitant]
     Route: 061
  6. TELAVIC (TELAPREVIR) [Suspect]
     Indication: HEPATITIS C
     Route: 048
     Dates: start: 20120222, end: 20120302
  7. TELAVIC (TELAPREVIR) [Suspect]
     Route: 048
     Dates: start: 20120303
  8. RIBAVIRIN [Concomitant]
     Route: 048
     Dates: start: 20120314
  9. WARFARIN SODIUM [Concomitant]
     Route: 048
     Dates: start: 20120405
  10. WARFARIN SODIUM [Concomitant]
     Route: 048
     Dates: end: 20120404
  11. MYSER CREAM 0.05% [Concomitant]
     Route: 061
  12. PEGINTERFERON ALFA-2B [Concomitant]
     Indication: HEPATITIS C
     Route: 051
     Dates: start: 20120222
  13. NORVASC [Concomitant]
     Route: 048
     Dates: end: 20120318
  14. NIZORAL [Concomitant]
     Route: 061
  15. TALION [Concomitant]
     Route: 048
     Dates: start: 20120221
  16. RIBAVIRIN [Concomitant]
     Indication: HEPATITIS C
     Route: 048
     Dates: start: 20120222, end: 20120302
  17. RIBAVIRIN [Concomitant]
     Route: 048
     Dates: start: 20120303, end: 20120313
  18. ASPIRIN [Concomitant]
     Route: 048
  19. NORVASC [Concomitant]
     Route: 048
     Dates: start: 20120319

REACTIONS (1)
  - DECREASED APPETITE [None]
